FAERS Safety Report 4325445-X (Version None)
Quarter: 2004Q1

REPORT INFORMATION
  Report Type: 
  Country: None (occurrence: None)
  Receive Date: 20040324
  Receipt Date: 20040315
  Transmission Date: 20041129
  Serious: Yes (Hospitalization)
  Sender: FDA-Public Use
  Company Number: 2004202768US

PATIENT
  Age: 50 Year
  Sex: Male

DRUGS (3)
  1. CAMPTOSAR [Suspect]
     Indication: OESOPHAGEAL CARCINOMA
     Dosage: 55.2 MG/M2, CYCLIC (DAY 1, DAY 8), IV
     Route: 042
     Dates: start: 20040120, end: 20040127
  2. CISPLATIN [Suspect]
     Dosage: 30 MG/M2, CYCLIC, (DAY 1, DAY 8), IV
     Route: 042
     Dates: start: 20040120, end: 20040127
  3. CAPECITABINE (CAPECITABINE) [Suspect]
     Indication: OESOPHAGEAL CARCINOMA
     Dosage: 1400 MG/KG, TWICE DAILY, ORAL
     Route: 048
     Dates: start: 20040120, end: 20040130

REACTIONS (4)
  - DEHYDRATION [None]
  - DIARRHOEA [None]
  - NAUSEA [None]
  - RETCHING [None]
